FAERS Safety Report 8941199 (Version 1)
Quarter: 2012Q4

REPORT INFORMATION
  Report Type: 
  Country: US (occurrence: US)
  Receive Date: 20121203
  Receipt Date: 20121203
  Transmission Date: 20130627
  Serious: Yes (Other)
  Sender: FDA-Public Use
  Company Number: US-ROCHE-1161523

PATIENT
  Sex: Male

DRUGS (3)
  1. TORADOL [Suspect]
     Indication: PRODUCT USED FOR UNKNOWN INDICATION
     Route: 065
  2. BENADRYL [Concomitant]
  3. REGLAN [Concomitant]
     Indication: ANXIETY

REACTIONS (9)
  - Aortic valve replacement [Unknown]
  - Mitral valve prolapse [Unknown]
  - Hypersensitivity [Unknown]
  - Gastric ulcer [Unknown]
  - Anxiety disorder [Unknown]
  - Nausea [Unknown]
  - Palpitations [Unknown]
  - Gastrooesophageal reflux disease [Unknown]
  - Panic disorder [Unknown]
